APPROVED DRUG PRODUCT: RANITIDINE HYDROCHLORIDE
Active Ingredient: RANITIDINE HYDROCHLORIDE
Strength: EQ 150MG BASE
Dosage Form/Route: TABLET;ORAL
Application: A200172 | Product #001
Applicant: APOTEX INC
Approved: May 31, 2012 | RLD: No | RS: No | Type: DISCN